FAERS Safety Report 4279564-7 (Version None)
Quarter: 2004Q1

REPORT INFORMATION
  Report Type: 
  Country: None (occurrence: None)
  Receive Date: 20040126
  Receipt Date: 20040126
  Transmission Date: 20041129
  Serious: Yes (Other)
  Sender: FDA-Public Use
  Company Number: None

PATIENT
  Age: 43 Year
  Sex: Female
  Weight: 55.7924 kg

DRUGS (8)
  1. HUMIRA [Suspect]
     Indication: SPONDYLITIS
     Dosage: 40 MG SC 2X MONTH
     Route: 058
     Dates: start: 20030701
  2. METHOTREXATE [Concomitant]
  3. FOLATE [Concomitant]
  4. ATENOLOL [Concomitant]
  5. TOLECTIN [Concomitant]
  6. PRED FORTE [Concomitant]
  7. OCP [Concomitant]
  8. CALCIUM [Concomitant]

REACTIONS (2)
  - OPTIC NEURITIS [None]
  - VISUAL DISTURBANCE [None]
